FAERS Safety Report 9627134 (Version 1)
Quarter: 2013Q4

REPORT INFORMATION
  Report Type: Spontaneous
  Country: SK (occurrence: SK)
  Receive Date: 20131016
  Receipt Date: 20131016
  Transmission Date: 20140711
  Serious: Yes (Other)
  Sender: FDA-Public Use
  Company Number: SK-PFIZER INC-2013297128

PATIENT
  Sex: Female

DRUGS (1)
  1. PREGABALIN [Suspect]
     Dosage: 150 MG, 2X/DAY

REACTIONS (4)
  - Gait disturbance [Unknown]
  - Impaired work ability [Unknown]
  - Pain [Unknown]
  - Insomnia [Unknown]
